FAERS Safety Report 9287954 (Version 2)
Quarter: 2013Q2

REPORT INFORMATION
  Report Type: Report from Study
  Country: JP (occurrence: JP)
  Receive Date: 20130514
  Receipt Date: 20130619
  Transmission Date: 20140414
  Serious: Yes (Death, Hospitalization)
  Sender: FDA-Public Use
  Company Number: JP-PFIZER INC-2013144225

PATIENT
  Age: 79 Year
  Sex: Male
  Weight: 54.2 kg

DRUGS (16)
  1. SILDENAFIL CITRATE [Suspect]
     Indication: PULMONARY ARTERIAL HYPERTENSION
     Dosage: 5 MG, 3X/DAY
     Route: 048
     Dates: start: 20090625, end: 20090629
  2. SILDENAFIL CITRATE [Suspect]
     Dosage: 10 MG, 3X/DAY
     Route: 048
     Dates: start: 20090630, end: 20090705
  3. SILDENAFIL CITRATE [Suspect]
     Dosage: 15 MG, 3X/DAY
     Route: 048
     Dates: start: 20090706, end: 20090726
  4. SILDENAFIL CITRATE [Suspect]
     Dosage: 20 MG, 3X/DAY
     Route: 048
     Dates: start: 20090727
  5. BAYASPIRIN [Concomitant]
     Dosage: UNK
     Route: 048
  6. ARTIST [Concomitant]
     Dosage: UNK
     Route: 048
  7. LIVALO [Concomitant]
     Dosage: UNK
     Route: 048
  8. TAKEPRON OD [Concomitant]
     Indication: PROPHYLAXIS
     Dosage: UNK
     Route: 048
  9. SALOBEL [Concomitant]
     Dosage: UNK
     Route: 048
  10. WARFARIN [Concomitant]
     Indication: PULMONARY HYPERTENSION
     Dosage: UNK
     Route: 048
     Dates: start: 20090702
  11. LASIX [Concomitant]
     Dosage: UNK
     Route: 048
     Dates: start: 20090719
  12. NOVORAPID [Concomitant]
     Dosage: UNK
     Route: 058
     Dates: start: 20090701, end: 20091104
  13. CLEANAL [Concomitant]
     Dosage: UNK
     Route: 048
     Dates: start: 20091024, end: 20091103
  14. MEDICON [Concomitant]
     Dosage: UNK
     Route: 048
     Dates: start: 20091024
  15. KLARICID [Concomitant]
     Dosage: UNK
     Route: 048
     Dates: start: 20091110
  16. DOBUPUM [Concomitant]
     Indication: PULMONARY HYPERTENSION
     Dosage: UNK
     Route: 042
     Dates: start: 20091113, end: 20091123

REACTIONS (2)
  - Cardiac failure chronic [Fatal]
  - Pulmonary hypertension [Fatal]
